FAERS Safety Report 11189475 (Version 1)
Quarter: 2015Q2

REPORT INFORMATION
  Report Type: Report from Study
  Country: US (occurrence: US)
  Receive Date: 20150615
  Receipt Date: 20150615
  Transmission Date: 20150821
  Serious: Yes (Other)
  Sender: FDA-Public Use
  Company Number: US-BAYER-2015-034958

PATIENT
  Age: 66 Year
  Sex: Female
  Weight: 61.68 kg

DRUGS (10)
  1. ONDANSETRON HYDROCHLORIDE. [Concomitant]
     Active Substance: ONDANSETRON HYDROCHLORIDE
  2. BROMELAIN [Concomitant]
     Active Substance: BROMELAINS
  3. NEXAVAR [Suspect]
     Active Substance: SORAFENIB
     Indication: RENAL CANCER
     Dosage: 400 MG, BID
     Route: 048
     Dates: start: 20150220
  4. PREVACID [Concomitant]
     Active Substance: LANSOPRAZOLE
  5. UREA. [Concomitant]
     Active Substance: UREA
  6. PROBIOTICA [Concomitant]
     Active Substance: PROBIOTICS NOS
  7. NITROFURANTOIN. [Concomitant]
     Active Substance: NITROFURANTOIN
  8. CALCIUM CITRATE [Concomitant]
     Active Substance: CALCIUM CITRATE
  9. IBUPROFEN. [Concomitant]
     Active Substance: IBUPROFEN
  10. TURMERIC [Concomitant]
     Active Substance: TURMERIC

REACTIONS (26)
  - Nausea [Unknown]
  - Peripheral swelling [Unknown]
  - Arthralgia [Recovered/Resolved]
  - Ear pain [Recovered/Resolved]
  - Rash [None]
  - Alopecia [None]
  - Skin discolouration [Recovered/Resolved]
  - Peripheral swelling [None]
  - Joint range of motion decreased [Not Recovered/Not Resolved]
  - Abdominal pain [Unknown]
  - Pain in extremity [Unknown]
  - Blister [Unknown]
  - Arthralgia [Unknown]
  - Epistaxis [Unknown]
  - Pain in extremity [Not Recovered/Not Resolved]
  - Palmar-plantar erythrodysaesthesia syndrome [Recovering/Resolving]
  - Hyperkeratosis [Not Recovered/Not Resolved]
  - Swelling face [None]
  - Superficial vein prominence [None]
  - Blister [None]
  - Erythema [Recovered/Resolved]
  - Visual acuity reduced [None]
  - Rash [Unknown]
  - Rash pruritic [Unknown]
  - Pain in jaw [Recovered/Resolved]
  - Skin fissures [Not Recovered/Not Resolved]

NARRATIVE: CASE EVENT DATE: 2015
